FAERS Safety Report 16978388 (Version 3)
Quarter: 2020Q1

REPORT INFORMATION
  Report Type: Spontaneous
  Country: US (occurrence: US)
  Receive Date: 20191031
  Receipt Date: 20200106
  Transmission Date: 20200409
  Serious: No
  Sender: FDA-Public Use
  Company Number: US-BRISTOL-MYERS SQUIBB COMPANY-BMS-2019-104452

PATIENT
  Sex: Male

DRUGS (1)
  1. SPRYCEL [Suspect]
     Active Substance: DASATINIB
     Indication: CHRONIC MYELOID LEUKAEMIA
     Dosage: 50 MILLIGRAM, 2 TABLETS ONCE A DAY
     Route: 048
     Dates: start: 201901

REACTIONS (3)
  - Night sweats [Not Recovered/Not Resolved]
  - Hyperhidrosis [Recovered/Resolved]
  - Product dose omission [Unknown]
